FAERS Safety Report 24938990 (Version 4)
Quarter: 2025Q2

REPORT INFORMATION
  Report Type: Spontaneous
  Country: US (occurrence: US)
  Receive Date: 20250206
  Receipt Date: 20250425
  Transmission Date: 20250716
  Serious: No
  Sender: PFIZER
  Company Number: US-PFIZER INC-PV202500014231

PATIENT
  Age: 75 Year
  Sex: Female

DRUGS (1)
  1. IBRANCE [Suspect]
     Active Substance: PALBOCICLIB

REACTIONS (8)
  - Nausea [Unknown]
  - Constipation [Unknown]
  - Peripheral swelling [Unknown]
  - Decreased appetite [Unknown]
  - Taste disorder [Unknown]
  - Fatigue [Unknown]
  - Hypersensitivity [Unknown]
  - Alopecia [Unknown]
